FAERS Safety Report 9380111 (Version 1)
Quarter: 2013Q3

REPORT INFORMATION
  Report Type: Spontaneous
  Country: ES (occurrence: ES)
  Receive Date: 20130702
  Receipt Date: 20130702
  Transmission Date: 20140515
  Serious: Yes (Other)
  Sender: FDA-Public Use
  Company Number: ES-TEVA-415634ISR

PATIENT
  Age: 68 Year
  Sex: Female

DRUGS (13)
  1. TRAMADOL [Suspect]
     Indication: PAIN MANAGEMENT
     Dosage: 150 MILLIGRAM DAILY;
     Route: 065
     Dates: start: 2011, end: 2011
  2. VENLAFAXINE [Interacting]
     Indication: DEPRESSION
     Dosage: 150MG CONTROLLED RELEASE
     Route: 065
     Dates: start: 200906
  3. MEMANTINE [Suspect]
     Dosage: 20MG
     Route: 065
     Dates: end: 2011
  4. CANDESARTAN CILEXETIL [Concomitant]
     Dosage: 8MG
     Route: 065
  5. CALCIUM [Concomitant]
     Route: 065
  6. VITAMIN D [Concomitant]
     Route: 065
  7. PENTOXIFYLLINE [Concomitant]
     Dosage: 800MG
     Route: 065
  8. FERROUS SULFATE [Concomitant]
     Dosage: 100MG
     Route: 065
  9. LORAZEPAM [Concomitant]
     Dosage: 5MG
     Route: 065
  10. AMLODIPINE [Concomitant]
     Dosage: 10MG
     Route: 065
  11. OMEPRAZOLE [Concomitant]
     Dosage: 20MG
     Route: 065
  12. SIMVASTATIN [Concomitant]
     Dosage: 10MG
     Route: 065
  13. INSULIN GLARGINE [Concomitant]
     Dosage: 28 IU
     Route: 065

REACTIONS (5)
  - Drug interaction [Recovered/Resolved]
  - Serotonin syndrome [Recovered/Resolved]
  - Tearfulness [Unknown]
  - Hyperglycaemia [Unknown]
  - Diarrhoea [Recovered/Resolved]
